FAERS Safety Report 5151533-4 (Version None)
Quarter: 2006Q4

REPORT INFORMATION
  Report Type: 
  Country: None (occurrence: None)
  Receive Date: 20061114
  Receipt Date: 20061114
  Transmission Date: 20070319
  Serious: Yes (Disabling)
  Sender: FDA-Public Use
  Company Number: None

PATIENT
  Sex: Female
  Weight: 59.5 kg

DRUGS (1)
  1. FLEETS PHOSPHOSODA [Suspect]
     Indication: COLONOSCOPY
     Dosage: 3 OZ  ONCE  ORALLY
     Route: 048
     Dates: start: 20060822

REACTIONS (4)
  - BLOOD CREATININE INCREASED [None]
  - CALCINOSIS [None]
  - POST PROCEDURAL COMPLICATION [None]
  - RENAL TUBULAR DISORDER [None]
